FAERS Safety Report 13140024 (Version 1)
Quarter: 2017Q1

REPORT INFORMATION
  Report Type: Spontaneous
  Country: US (occurrence: US)
  Receive Date: 20170123
  Receipt Date: 20170123
  Transmission Date: 20170428
  Serious: No
  Sender: FDA-Public Use
  Company Number: US-UNITED THERAPEUTICS-UNT-2016-014462

PATIENT
  Age: 57 Year
  Sex: Female
  Weight: 99.77 kg

DRUGS (1)
  1. REMODULIN [Suspect]
     Active Substance: TREPROSTINIL
     Indication: PULMONARY ARTERIAL HYPERTENSION
     Dosage: 0.0603 ?G/KG, CONTINUING
     Route: 058
     Dates: start: 20140925

REACTIONS (3)
  - Infusion site discharge [Unknown]
  - Infusion site induration [Unknown]
  - Infusion site pustule [Unknown]

NARRATIVE: CASE EVENT DATE: 201608
